FAERS Safety Report 8832412 (Version 1)
Quarter: 2012Q4

REPORT INFORMATION
  Report Type: Spontaneous
  Country: US (occurrence: None)
  Receive Date: 20121005
  Receipt Date: 20121005
  Transmission Date: 20130627
  Serious: Yes (Death)
  Sender: FDA-Public Use
  Company Number: 20120036

PATIENT
  Age: 68 Year
  Sex: Female

DRUGS (2)
  1. SUBSYS (FENTANYL SUBLINGUAL SPRAY) 200MCG, INSYS THERAPEUTICS [Suspect]
     Indication: METASTATIC BREAST CANCER
     Route: 060
     Dates: start: 20120911, end: 20120919
  2. SUBSYS (FENTANYL SUBLINGUAL SPRAY) 200MCG, INSYS THERAPEUTICS [Suspect]
     Indication: CANCER PAIN
     Route: 060
     Dates: start: 20120911, end: 20120919

REACTIONS (1)
  - Hospice care [None]
